FAERS Safety Report 18707860 (Version 3)
Quarter: 2021Q1

REPORT INFORMATION
  Report Type: Report from Study
  Country: US (occurrence: US)
  Receive Date: 20210106
  Receipt Date: 20210324
  Transmission Date: 20210419
  Serious: No
  Sender: FDA-Public Use
  Company Number: US-AMGEN INC.-USASP2021000144

PATIENT
  Sex: Female

DRUGS (1)
  1. AIMOVIG [Suspect]
     Active Substance: ERENUMAB-AOOE
     Indication: PRODUCT USED FOR UNKNOWN INDICATION
     Dosage: 140 MILLIGRAM (EVERY 30 DAYS)
     Route: 065

REACTIONS (2)
  - Product supply issue [Unknown]
  - Headache [Not Recovered/Not Resolved]
